FAERS Safety Report 6732435-6 (Version None)
Quarter: 2010Q2

REPORT INFORMATION
  Report Type: 
  Country: None (occurrence: None)
  Receive Date: 20100519
  Receipt Date: 20100507
  Transmission Date: 20101027
  Serious: Yes (Disabling)
  Sender: FDA-Public Use
  Company Number: DE-ROCHE-703539

PATIENT
  Sex: Female
  Weight: 55 kg

DRUGS (3)
  1. XELODA [Suspect]
     Route: 065
     Dates: start: 20071217, end: 20100208
  2. TYVERB [Suspect]
     Route: 065
     Dates: start: 20071217, end: 20100208
  3. ZOMETA [Concomitant]
     Dates: start: 20040429, end: 20100511

REACTIONS (1)
  - LIPOATROPHY [None]
